FAERS Safety Report 9238654 (Version 3)
Quarter: 2013Q2

REPORT INFORMATION
  Report Type: Spontaneous
  Country: TW (occurrence: TW)
  Receive Date: 20130418
  Receipt Date: 20130529
  Transmission Date: 20140414
  Serious: Yes (Other)
  Sender: FDA-Public Use
  Company Number: TW-GENZYME-CERZ-1002918

PATIENT
  Age: 13 Year
  Sex: Female
  Weight: 36 kg

DRUGS (1)
  1. CEREZYME [Suspect]
     Indication: GAUCHER^S DISEASE
     Dosage: 60 U/KG, Q2W
     Route: 042
     Dates: start: 2001

REACTIONS (1)
  - Epilepsy [Unknown]
